FAERS Safety Report 23873988 (Version 2)
Quarter: 2024Q3

REPORT INFORMATION
  Report Type: Spontaneous
  Country: GB (occurrence: GB)
  Receive Date: 20240520
  Receipt Date: 20240821
  Transmission Date: 20241016
  Serious: Yes (Other)
  Sender: SANOFI AVENTIS
  Company Number: GB-SANOFI-01712555

PATIENT
  Age: 27 Year
  Sex: Female
  Weight: 71 kg

DRUGS (3)
  1. DUPIXENT [Suspect]
     Active Substance: DUPILUMAB
     Indication: Eczema
     Dosage: 300 MG, QOW
     Dates: start: 20210801
  2. FOLIC ACID [Concomitant]
     Active Substance: FOLIC ACID
     Dosage: 5 MG, QD
     Route: 048
     Dates: start: 20240312
  3. CODEINE [Concomitant]
     Active Substance: CODEINE
     Dosage: 30 MG, QD (5-8 WKS)

REACTIONS (5)
  - Syncope [Recovered/Resolved]
  - Blood iron decreased [Recovered/Resolved]
  - Hypotension [Recovered/Resolved]
  - Oophorectomy [Recovered/Resolved]
  - Maternal exposure during pregnancy [Unknown]

NARRATIVE: CASE EVENT DATE: 20230101
